FAERS Safety Report 20749246 (Version 1)
Quarter: 2022Q2

REPORT INFORMATION
  Report Type: Spontaneous
  Country: US (occurrence: US)
  Receive Date: 20220426
  Receipt Date: 20220426
  Transmission Date: 20220721
  Serious: Yes (Other)
  Sender: FDA-Public Use
  Company Number: US-SANOFI-01072471

PATIENT
  Sex: Female

DRUGS (1)
  1. CAPSAICIN [Suspect]
     Active Substance: CAPSAICIN
     Dosage: UNK

REACTIONS (3)
  - Macular degeneration [Unknown]
  - Blindness [Unknown]
  - Arthralgia [Unknown]
